FAERS Safety Report 7407488-2 (Version None)
Quarter: 2011Q2

REPORT INFORMATION
  Report Type: 
  Country: None (occurrence: None)
  Receive Date: 20110412
  Receipt Date: 20110404
  Transmission Date: 20111010
  Serious: Yes (Hospitalization)
  Sender: FDA-Public Use
  Company Number: JP-AMGEN-JPNSP2011002028

PATIENT
  Age: 79 Year
  Sex: Female
  Weight: 41 kg

DRUGS (5)
  1. RINDERON                           /00008501/ [Concomitant]
     Indication: RHEUMATOID ARTHRITIS
     Dosage: UNK, 1X/DAY
     Dates: start: 20070101
  2. GASMOTIN [Concomitant]
     Indication: GASTRITIS
     Dosage: UNK
     Dates: start: 20070101
  3. BONALON                            /01220302/ [Concomitant]
     Indication: OSTEOPOROSIS
     Dosage: UNK
     Dates: start: 19981201
  4. ENBREL [Suspect]
     Indication: RHEUMATOID ARTHRITIS
     Dosage: 25 MG, WEEKLY
     Route: 058
     Dates: start: 20100423, end: 20110108
  5. THYRADIN S [Concomitant]
     Indication: HYPOTHYROIDISM
     Dosage: UNK, 1X/DAY
     Dates: start: 20070101

REACTIONS (4)
  - ERYTHEMA [None]
  - JOINT SWELLING [None]
  - ALOPECIA [None]
  - OEDEMA PERIPHERAL [None]
